FAERS Safety Report 7964421-2 (Version None)
Quarter: 2011Q4

REPORT INFORMATION
  Report Type: 
  Country: None (occurrence: None)
  Receive Date: 20111208
  Receipt Date: 20111206
  Transmission Date: 20120403
  Serious: Yes (Other)
  Sender: FDA-Public Use
  Company Number: BE-PFIZER INC-2011291525

PATIENT
  Age: 47 Year
  Sex: Male
  Weight: 87 kg

DRUGS (2)
  1. VARENICLINE TARTRATE [Suspect]
     Indication: SMOKING CESSATION THERAPY
     Dosage: 1 MG, 2X/DAY
     Route: 048
     Dates: start: 20110628
  2. NEXIUM [Concomitant]
     Indication: OESOPHAGITIS
     Dosage: 20 MG, UNK
     Route: 048

REACTIONS (4)
  - AGGRESSION [None]
  - PANIC REACTION [None]
  - DRUG DEPENDENCE [None]
  - RESTLESSNESS [None]
